FAERS Safety Report 4806890-2 (Version None)
Quarter: 2005Q4

REPORT INFORMATION
  Report Type: 
  Country: None (occurrence: None)
  Receive Date: 20051019
  Receipt Date: 20050929
  Transmission Date: 20060501
  Serious: Yes (Hospitalization)
  Sender: FDA-Public Use
  Company Number: FR_050907222

PATIENT
  Age: 84 Year
  Sex: Female
  Weight: 73 kg

DRUGS (6)
  1. HUMULIN N [Suspect]
     Indication: DIABETES MELLITUS
     Dosage: 16 IU IN THE EVENING
     Dates: end: 20050611
  2. INSULIN MIXTARD 30/70 [Concomitant]
  3. LEVOTHYROXINE SODIUM [Concomitant]
  4. POTASSIUM CHLORIDE [Concomitant]
  5. FUROSEMIDE [Concomitant]
  6. RAMIPRIL [Concomitant]

REACTIONS (3)
  - ATRIAL FIBRILLATION [None]
  - HYPOGLYCAEMIA [None]
  - MALAISE [None]
